FAERS Safety Report 7442954 (Version 2)
Quarter: 2012Q4

REPORT INFORMATION
  Report Type: Report from Study
  Country: JP (occurrence: JP)
  Receive Date: 20100628
  Receipt Date: 20121023
  Transmission Date: 20130627
  Serious: Yes (Death, Other)
  Sender: FDA-Public Use
  Company Number: PHHY2010JP41298

PATIENT
  Age: 70 Year
  Sex: Female

DRUGS (14)
  1. AMN107 [Suspect]
     Indication: CHRONIC MYELOID LEUKAEMIA
     Dosage: 200 mg, daily
     Route: 048
     Dates: start: 20100202, end: 20100224
  2. AMN107 [Suspect]
     Dosage: 200 mg, daily
     Route: 048
     Dates: start: 20100406, end: 20100602
  3. LUPRAC [Suspect]
     Dosage: 8 mg, UNK
     Route: 048
     Dates: start: 20100521
  4. LASIX [Suspect]
  5. BAKTAR [Concomitant]
     Dosage: 0.5 DF, UNK
     Route: 048
     Dates: start: 20100202
  6. ADALAT [Concomitant]
     Dosage: 20 mg, UNK
     Route: 048
     Dates: start: 20100202
  7. ONEALFA [Concomitant]
     Dosage: 1.0 ug, UNK
     Route: 048
     Dates: start: 20100603
  8. ALDACTONE [Concomitant]
     Dosage: 25 mg, UNK
     Route: 048
     Dates: start: 20100603
  9. GASTER [Concomitant]
     Dosage: 20 mg, UNK
     Route: 048
     Dates: start: 20100603
  10. REBAMIPIDE [Concomitant]
     Dosage: 200 mg, UNK
     Route: 048
     Dates: start: 20100603
  11. ISCOTIN [Concomitant]
     Dosage: 400 mg, UNK
     Route: 048
     Dates: start: 20100601
  12. PREDNISOLONE [Concomitant]
     Dosage: 2 mg, UNK
     Route: 048
     Dates: start: 20100603
  13. MAGMITT [Concomitant]
     Dosage: 330 mg, UNK
     Route: 048
     Dates: start: 20100603
  14. ROHYPNOL [Concomitant]
     Route: 048

REACTIONS (11)
  - Sepsis [Fatal]
  - Oedema peripheral [Not Recovered/Not Resolved]
  - Platelet count decreased [Recovered/Resolved]
  - Blood creatinine increased [Not Recovered/Not Resolved]
  - Blood uric acid increased [Recovering/Resolving]
  - Blood lactate dehydrogenase increased [Unknown]
  - Gamma-glutamyltransferase increased [Unknown]
  - Blood urea increased [Unknown]
  - White blood cell count decreased [Unknown]
  - Red blood cell count decreased [Unknown]
  - White blood cell count increased [Unknown]
